FAERS Safety Report 4897056-9 (Version None)
Quarter: 2006Q1

REPORT INFORMATION
  Report Type: 
  Country: None (occurrence: None)
  Receive Date: 20060127
  Receipt Date: 20060123
  Transmission Date: 20060701
  Serious: Yes (Death)
  Sender: FDA-Public Use
  Company Number: A044-002-005926

PATIENT
  Age: 75 Year
  Sex: Female
  Weight: 60 kg

DRUGS (6)
  1. ARICEPT [Suspect]
     Dosage: ORAL
     Route: 048
     Dates: start: 20050101, end: 20050913
  2. OLANZAPINE [Suspect]
     Indication: DELUSION
     Dosage: ORAL
     Route: 048
     Dates: start: 20050701, end: 20050913
  3. ALENDRONATE(ALENDRONATE SODIUM) [Concomitant]
  4. CODEINE (CODEINE) [Concomitant]
  5. METOPROLOL SUCCINATE [Concomitant]
  6. HYDROCHLOROTHIAZIDE (HYDROCHLOROTHAZIDE) [Concomitant]

REACTIONS (2)
  - DRUG INTERACTION [None]
  - SUDDEN DEATH [None]
